FAERS Safety Report 7996866-9 (Version None)
Quarter: 2011Q4

REPORT INFORMATION
  Report Type: 
  Country: None (occurrence: None)
  Receive Date: 20111221
  Receipt Date: 20101020
  Transmission Date: 20120403
  Serious: Yes (Other)
  Sender: FDA-Public Use
  Company Number: DE-UCBSA-047826

PATIENT
  Sex: Female

DRUGS (1)
  1. KEPPRA [Suspect]

REACTIONS (2)
  - ABORTION [None]
  - MATERNAL EXPOSURE DURING PREGNANCY [None]
